FAERS Safety Report 5748989-2 (Version None)
Quarter: 2008Q2

REPORT INFORMATION
  Report Type: 
  Country: None (occurrence: None)
  Receive Date: 20080527
  Receipt Date: 20080513
  Transmission Date: 20081010
  Serious: Yes (Hospitalization)
  Sender: FDA-Public Use
  Company Number: US-ELI_LILLY_AND_COMPANY-US200805002800

PATIENT
  Age: 73 Year
  Sex: Female

DRUGS (5)
  1. ZYPREXA [Suspect]
  2. DIOVAN [Concomitant]
  3. EFFEXOR [Concomitant]
  4. CLONAZEPAM [Concomitant]
     Dosage: 1 D/F, DAILY (1/D)
  5. SINEMET [Concomitant]
     Dosage: 6 D/F, DAILY (1/D)

REACTIONS (3)
  - GAIT DISTURBANCE [None]
  - MULTIPLE SCLEROSIS [None]
  - TREMOR [None]
